FAERS Safety Report 11309819 (Version 1)
Quarter: 2015Q3

REPORT INFORMATION
  Report Type: Spontaneous
  Country: US (occurrence: US)
  Receive Date: 20150724
  Receipt Date: 20150724
  Transmission Date: 20151125
  Serious: Yes (Hospitalization, Other)
  Sender: FDA-Public Use
  Company Number: US-TEVA-580892USA

PATIENT
  Age: 14 Year
  Sex: Female

DRUGS (5)
  1. OXCARBAZEPINE. [Suspect]
     Active Substance: OXCARBAZEPINE
     Indication: INTENTIONAL OVERDOSE
     Route: 048
  2. CITALOPRAM [Concomitant]
     Active Substance: CITALOPRAM HYDROBROMIDE
     Indication: INTENTIONAL OVERDOSE
     Route: 048
  3. DOXYCYCLINE. [Suspect]
     Active Substance: DOXYCYCLINE
     Indication: INTENTIONAL OVERDOSE
     Route: 048
  4. MELATONIN [Suspect]
     Active Substance: MELATONIN
     Indication: INTENTIONAL OVERDOSE
     Route: 048
  5. OMEPRAZOLE. [Suspect]
     Active Substance: OMEPRAZOLE
     Indication: INTENTIONAL OVERDOSE
     Route: 048

REACTIONS (4)
  - Intentional overdose [Unknown]
  - Vomiting [Unknown]
  - Mental status changes [Unknown]
  - Suicide attempt [Unknown]
